FAERS Safety Report 24755930 (Version 3)
Quarter: 2025Q2

REPORT INFORMATION
  Report Type: Spontaneous
  Country: JP (occurrence: JP)
  Receive Date: 20241219
  Receipt Date: 20250403
  Transmission Date: 20250716
  Serious: Yes (Death, Hospitalization)
  Sender: TAKEDA
  Company Number: JP-TAKEDA-2024TJP018056

PATIENT
  Age: 8 Decade

DRUGS (1)
  1. NINLARO [Suspect]
     Active Substance: IXAZOMIB CITRATE
     Indication: Plasma cell myeloma
     Dosage: 4 MILLIGRAM, 1/WEEK
     Dates: start: 20241001

REACTIONS (3)
  - C-reactive protein increased [Fatal]
  - Bone marrow disorder [Fatal]
  - Infection [Fatal]
